FAERS Safety Report 7232389-2 (Version None)
Quarter: 2011Q1

REPORT INFORMATION
  Report Type: 
  Country: None (occurrence: None)
  Receive Date: 20110119
  Receipt Date: 20110113
  Transmission Date: 20110831
  Serious: Yes (Other)
  Sender: FDA-Public Use
  Company Number: IT-JNJFOC-20110104103

PATIENT
  Age: 34 Year
  Sex: Female

DRUGS (5)
  1. L-TRYPTOPHAN [Suspect]
     Indication: ILL-DEFINED DISORDER
     Route: 048
  2. LANOXIN [Suspect]
     Indication: ILL-DEFINED DISORDER
     Route: 048
  3. WELLBUTRIN [Suspect]
     Indication: ILL-DEFINED DISORDER
     Route: 048
  4. SERTRALINE [Suspect]
     Indication: ILL-DEFINED DISORDER
     Route: 048
  5. TOPAMAX [Suspect]
     Indication: ILL-DEFINED DISORDER
     Route: 048

REACTIONS (2)
  - MULTIPLE DRUG OVERDOSE INTENTIONAL [None]
  - SELF INJURIOUS BEHAVIOUR [None]
